FAERS Safety Report 7691651-X (Version None)
Quarter: 2011Q3

REPORT INFORMATION
  Report Type: 
  Country: None (occurrence: None)
  Receive Date: 20110818
  Receipt Date: 20110809
  Transmission Date: 20111222
  Serious: Yes (Hospitalization)
  Sender: FDA-Public Use
  Company Number: SE-B.I. PHARMACEUTICALS,INC./RIDGEFIELD-2011-SW-00325SW

PATIENT
  Sex: Male

DRUGS (9)
  1. OMEPRAZOL AGP [Concomitant]
  2. FOLIC ACID [Concomitant]
  3. LASIX [Concomitant]
  4. PRADAXA [Suspect]
     Indication: ATRIAL FIBRILLATION
     Route: 048
     Dates: start: 20070824, end: 20110521
  5. SPIRIVA [Concomitant]
  6. ACETYLSYSTEIN [Concomitant]
  7. ATACAND [Concomitant]
  8. BISOPROLOL FUMARATE [Concomitant]
  9. B-KOMBIN FORTE N [Concomitant]

REACTIONS (2)
  - BLOOD ALKALINE PHOSPHATASE INCREASED [None]
  - BLOOD BILIRUBIN INCREASED [None]
